FAERS Safety Report 18460773 (Version 1)
Quarter: 2020Q4

REPORT INFORMATION
  Report Type: Report from Study
  Country: ES (occurrence: ES)
  Receive Date: 20201104
  Receipt Date: 20201104
  Transmission Date: 20210114
  Serious: Yes (Other)
  Sender: FDA-Public Use
  Company Number: ES-TEVA-2020-ES-1844187

PATIENT
  Age: 80 Year
  Sex: Female

DRUGS (5)
  1. CARBAMAZEPINA (561A) [Suspect]
     Active Substance: CARBAMAZEPINE
     Indication: TRIGEMINAL NEURALGIA
     Dosage: CSTART WITH 200MG / 12H. AND THE DOSE IS REDUCED, THE CURRENT DOSE IS NOT KNOWN
     Route: 048
     Dates: start: 20181210
  2. SIMVASTATINA (1023A) [Concomitant]
     Active Substance: SIMVASTATIN
  3. PREGABALINA (3897A) [Suspect]
     Active Substance: PREGABALIN
     Indication: TRIGEMINAL NEURALGIA
     Dosage: STARTS WITH DOSES OF 75 MG / 12 H AND IS REDUCED, ALTHOUGH THE CURRENT DOSE IS NOT SPECIFIED
     Route: 048
     Dates: start: 20181029
  4. BISOPROLOL (2328A) [Concomitant]
     Active Substance: BISOPROLOL
  5. APIXABAN (8472A) [Concomitant]
     Active Substance: APIXABAN
     Indication: ATRIAL FIBRILLATION

REACTIONS (2)
  - Syncope [Recovered/Resolved]
  - Bradycardia [Recovered/Resolved]

NARRATIVE: CASE EVENT DATE: 20200103
